FAERS Safety Report 4513809-0 (Version None)
Quarter: 2004Q4

REPORT INFORMATION
  Report Type: 
  Country: None (occurrence: None)
  Receive Date: 20041130
  Receipt Date: 20041029
  Transmission Date: 20050328
  Serious: No
  Sender: FDA-Public Use
  Company Number: US-GLAXOSMITHKLINE-A0532257A

PATIENT

DRUGS (2)
  1. WELLBUTRIN XL [Suspect]
     Indication: DEPRESSION
     Route: 048
  2. CYMBALTA [Concomitant]

REACTIONS (2)
  - PHOTOSENSITIVE RASH [None]
  - PHOTOSENSITIVITY REACTION [None]
